FAERS Safety Report 23904647 (Version 1)
Quarter: 2024Q2

REPORT INFORMATION
  Report Type: Report from Study
  Country: US (occurrence: US)
  Receive Date: 20240527
  Receipt Date: 20240527
  Transmission Date: 20240715
  Serious: Yes (Other)
  Sender: FDA-Public Use
  Company Number: US-EXELIXIS-CABO-24077576

PATIENT
  Sex: Male
  Weight: 90.975 kg

DRUGS (1)
  1. CABOMETYX [Suspect]
     Active Substance: CABOZANTINIB S-MALATE
     Indication: Renal cancer
     Dosage: 60 MG, QD
     Route: 048
     Dates: start: 20230409

REACTIONS (4)
  - Neuropathy peripheral [Recovering/Resolving]
  - Spinal nerve stimulator implantation [Unknown]
  - Diarrhoea [Unknown]
  - Fatigue [Unknown]
